FAERS Safety Report 6847652-4 (Version None)
Quarter: 2010Q3

REPORT INFORMATION
  Report Type: 
  Country: None (occurrence: None)
  Receive Date: 20100716
  Receipt Date: 20100705
  Transmission Date: 20110219
  Serious: Yes (Other)
  Sender: FDA-Public Use
  Company Number: PHHY2010DE44294

PATIENT

DRUGS (1)
  1. ZOMETA [Suspect]
     Dosage: UNK
     Route: 042
     Dates: start: 20020101

REACTIONS (3)
  - IMPAIRED HEALING [None]
  - OSTEONECROSIS OF JAW [None]
  - TOOTH EXTRACTION [None]
